FAERS Safety Report 6028053-8 (Version None)
Quarter: 2008Q4

REPORT INFORMATION
  Report Type: 
  Country: None (occurrence: None)
  Receive Date: 20081231
  Receipt Date: 20081218
  Transmission Date: 20090506
  Serious: Yes (Hospitalization)
  Sender: FDA-Public Use
  Company Number: 2008S1022589

PATIENT
  Age: 55 Year
  Sex: Female

DRUGS (11)
  1. DIAZEPAM [Suspect]
     Indication: DRUG USE FOR UNKNOWN INDICATION
     Dosage: 10 MG; DAILY; ORAL
     Route: 048
     Dates: start: 20080417, end: 20080530
  2. ZOPICLONE (ZOPICLONE) [Suspect]
     Indication: DRUG USE FOR UNKNOWN INDICATION
     Dosage: 15 MG; DAILY; ORAL
     Route: 048
     Dates: start: 20080417, end: 20080808
  3. VALPROIC ACID [Suspect]
     Indication: DRUG USE FOR UNKNOWN INDICATION
     Dosage: SEE IMAGE.
     Route: 048
     Dates: start: 20080129, end: 20080410
  4. VALPROIC ACID [Suspect]
     Indication: DRUG USE FOR UNKNOWN INDICATION
     Dosage: SEE IMAGE.
     Route: 048
     Dates: start: 20080411, end: 20080417
  5. VALPROIC ACID [Suspect]
     Indication: DRUG USE FOR UNKNOWN INDICATION
     Dosage: SEE IMAGE.
     Route: 048
     Dates: start: 20080418, end: 20080421
  6. VALPROIC ACID [Suspect]
     Indication: DRUG USE FOR UNKNOWN INDICATION
     Dosage: SEE IMAGE.
     Route: 048
     Dates: start: 20080422, end: 20080424
  7. VALPROIC ACID [Suspect]
     Indication: DRUG USE FOR UNKNOWN INDICATION
     Dosage: SEE IMAGE.
     Route: 048
     Dates: start: 20080425, end: 20080606
  8. VALPROIC ACID [Suspect]
     Indication: DRUG USE FOR UNKNOWN INDICATION
     Dosage: SEE IMAGE.
     Route: 048
     Dates: start: 20080607, end: 20080620
  9. VALPROIC ACID [Suspect]
     Indication: DRUG USE FOR UNKNOWN INDICATION
     Dosage: SEE IMAGE.
     Route: 048
     Dates: start: 20080621, end: 20080626
  10. VALPROIC ACID [Suspect]
     Indication: DRUG USE FOR UNKNOWN INDICATION
     Dosage: SEE IMAGE.
     Route: 048
     Dates: start: 20080625, end: 20080708
  11. ZYPREXA [Suspect]
     Indication: DRUG USE FOR UNKNOWN INDICATION
     Dosage: 10 MG; DAILY; ORAL
     Route: 048
     Dates: start: 20080428, end: 20080530

REACTIONS (1)
  - LIVER FUNCTION TEST ABNORMAL [None]
